FAERS Safety Report 18219052 (Version 1)
Quarter: 2020Q3

REPORT INFORMATION
  Report Type: Spontaneous
  Country: US (occurrence: US)
  Receive Date: 20200901
  Receipt Date: 20200901
  Transmission Date: 20201103
  Serious: Yes (Other)
  Sender: FDA-Public Use
  Company Number: US-PURACAP PHARMACEUTICAL LLC-2020EPC00250

PATIENT
  Sex: Female

DRUGS (2)
  1. NIGHTTIME SLEEP AID MAXIMUM STRENGTH [Suspect]
     Active Substance: DIPHENHYDRAMINE HYDROCHLORIDE
     Dosage: MORE FREQUENTY OVER THE LAST FEW MONTHS
     Dates: start: 2020
  2. NIGHTTIME SLEEP AID MAXIMUM STRENGTH [Suspect]
     Active Substance: DIPHENHYDRAMINE HYDROCHLORIDE
     Dosage: ^OFF AND ON^
     Dates: start: 2017

REACTIONS (4)
  - Hip fracture [Unknown]
  - Epistaxis [Unknown]
  - Nasal discomfort [Unknown]
  - Pain [Not Recovered/Not Resolved]
